FAERS Safety Report 6204402-2 (Version None)
Quarter: 2009Q2

REPORT INFORMATION
  Report Type: 
  Country: None (occurrence: None)
  Receive Date: 20090521
  Receipt Date: 20090511
  Transmission Date: 20091009
  Serious: No
  Sender: FDA-Public Use
  Company Number: 2009-193192-NL

PATIENT
  Age: 24 Year
  Sex: Female

DRUGS (2)
  1. NUVARING [Suspect]
     Indication: CONTRACEPTION
     Dosage: DF
     Dates: start: 20081108, end: 20090420
  2. PAROXETINE HYDROCHLORIDE [Concomitant]

REACTIONS (2)
  - BLINDNESS TRANSIENT [None]
  - BLINDNESS UNILATERAL [None]
